FAERS Safety Report 16398345 (Version 1)
Quarter: 2019Q2

REPORT INFORMATION
  Report Type: Spontaneous
  Country: GR (occurrence: GR)
  Receive Date: 20190606
  Receipt Date: 20190606
  Transmission Date: 20190711
  Serious: Yes (Other)
  Sender: FDA-Public Use
  Company Number: GR-PFIZER INC-2019237821

PATIENT
  Age: 47 Year
  Sex: Male
  Weight: 83 kg

DRUGS (3)
  1. LIPIDIL [Concomitant]
     Active Substance: FENOFIBRATE
     Dosage: UNK
  2. LIPITOR [Suspect]
     Active Substance: ATORVASTATIN CALCIUM
     Dosage: 1 DF, 1X/DAY
     Route: 048
  3. EZETROL [Concomitant]
     Active Substance: EZETIMIBE
     Dosage: 1 DF, 1X/DAY
     Route: 048

REACTIONS (1)
  - Pain [Recovered/Resolved]
